FAERS Safety Report 4708551-7 (Version None)
Quarter: 2005Q3

REPORT INFORMATION
  Report Type: 
  Country: None (occurrence: None)
  Receive Date: 20050707
  Receipt Date: 20050629
  Transmission Date: 20060218
  Serious: Yes (Other)
  Sender: FDA-Public Use
  Company Number: FR-GLAXOSMITHKLINE-B0386775A

PATIENT
  Age: 65 Year
  Sex: Female

DRUGS (1)
  1. ZELITREX [Suspect]
     Route: 048
     Dates: start: 20050101

REACTIONS (1)
  - LEUKOCYTOSIS [None]
